FAERS Safety Report 7867229-1 (Version None)
Quarter: 2011Q4

REPORT INFORMATION
  Report Type: 
  Country: None (occurrence: None)
  Receive Date: 20111028
  Receipt Date: 20111026
  Transmission Date: 20120403
  Serious: Yes (Other)
  Sender: FDA-Public Use
  Company Number: FR-GLAXOSMITHKLINE-B0758168A

PATIENT
  Age: 12 Year
  Sex: Female
  Weight: 30 kg

DRUGS (1)
  1. MALARONE [Suspect]
     Indication: PRODUCT USED FOR UNKNOWN INDICATION
     Dosage: 3TAB PER DAY
     Route: 048
     Dates: start: 20110817, end: 20110818

REACTIONS (5)
  - RESPIRATORY DISORDER [None]
  - ASTHENIA [None]
  - TREMOR [None]
  - APHASIA [None]
  - VOMITING [None]
